FAERS Safety Report 4486995-9 (Version None)
Quarter: 2004Q4

REPORT INFORMATION
  Report Type: 
  Country: None (occurrence: None)
  Receive Date: 20041022
  Receipt Date: 20041005
  Transmission Date: 20050328
  Serious: Yes (Other)
  Sender: FDA-Public Use
  Company Number: 2004237265ES

PATIENT
  Sex: Female

DRUGS (2)
  1. DELTASONE [Suspect]
  2. ASACARD(ACETYLSALICYLIC ACID) CAPSULE, PROLONGED RELEASE [Suspect]

REACTIONS (2)
  - DRUG EXPOSURE DURING PREGNANCY [None]
  - SKIN MALFORMATION [None]
